FAERS Safety Report 5751413-7 (Version None)
Quarter: 2008Q2

REPORT INFORMATION
  Report Type: 
  Country: None (occurrence: None)
  Receive Date: 20080528
  Receipt Date: 20080520
  Transmission Date: 20081010
  Serious: Yes (Death)
  Sender: FDA-Public Use
  Company Number: US-ALLERGAN-0805662US

PATIENT
  Sex: Male

DRUGS (2)
  1. BOTOX COSMETIC [Suspect]
     Indication: SKIN WRINKLING
  2. HYALURONIC ACID [Suspect]
     Indication: SKIN WRINKLING
     Dosage: UNK, SINGLE
     Route: 023

REACTIONS (1)
  - LUNG DISORDER [None]
